FAERS Safety Report 16331859 (Version 2)
Quarter: 2019Q2

REPORT INFORMATION
  Report Type: Spontaneous
  Country: JP (occurrence: JP)
  Receive Date: 20190520
  Receipt Date: 20190613
  Transmission Date: 20190711
  Serious: Yes (Hospitalization, Other)
  Sender: FDA-Public Use
  Company Number: JP-SA-2019SA132655

PATIENT
  Age: 61 Year
  Sex: Male
  Weight: 57 kg

DRUGS (2)
  1. CAPECITABINE. [Concomitant]
     Active Substance: CAPECITABINE
     Dosage: UNK UNK, UNK
     Route: 065
  2. ELPLAT [Suspect]
     Active Substance: OXALIPLATIN
     Indication: RECTAL CANCER
     Dosage: UNK UNK, QD
     Route: 041

REACTIONS (7)
  - Cerebellar infarction [Recovered/Resolved]
  - Vertigo [Unknown]
  - C-reactive protein increased [Unknown]
  - Anaemia [Unknown]
  - Coordination abnormal [Unknown]
  - Aortic thrombosis [Recovered/Resolved]
  - Renal infarct [Unknown]
